FAERS Safety Report 24535020 (Version 1)
Quarter: 2024Q4

REPORT INFORMATION
  Report Type: Spontaneous
  Country: JP (occurrence: JP)
  Receive Date: 20241022
  Receipt Date: 20241022
  Transmission Date: 20250115
  Serious: Yes (Death, Other)
  Sender: STRIDES
  Company Number: JP-STRIDES ARCOLAB LIMITED-2024SP013568

PATIENT
  Age: 56 Year
  Sex: Male

DRUGS (6)
  1. PREDNISOLONE [Suspect]
     Active Substance: PREDNISOLONE
     Indication: Protein-losing gastroenteropathy
     Dosage: 20 MILLIGRAM, QD (FOR 3 YEARS)
     Route: 048
  2. PREDNISOLONE [Suspect]
     Active Substance: PREDNISOLONE
     Indication: Ascites
  3. ALBUMINAR [Suspect]
     Active Substance: ALBUMIN HUMAN
     Indication: Protein-losing gastroenteropathy
     Dosage: UNK (TWICE PER INJECTION)
     Route: 042
  4. ALBUMINAR [Suspect]
     Active Substance: ALBUMIN HUMAN
     Indication: Ascites
  5. SPIRONOLACTONE [Suspect]
     Active Substance: SPIRONOLACTONE
     Indication: Protein-losing gastroenteropathy
     Dosage: 100 MILLIGRAM, QD (FOR 3 YEARS)
     Route: 048
  6. SPIRONOLACTONE [Suspect]
     Active Substance: SPIRONOLACTONE
     Indication: Ascites

REACTIONS (2)
  - Drug ineffective [Fatal]
  - Pneumonia [Not Recovered/Not Resolved]
